FAERS Safety Report 6250974-1 (Version None)
Quarter: 2009Q2

REPORT INFORMATION
  Report Type: 
  Country: None (occurrence: None)
  Receive Date: 20090630
  Receipt Date: 20090317
  Transmission Date: 20091009
  Serious: No
  Sender: FDA-Public Use
  Company Number: US-ABBOTT-09P-163-0563379-00

PATIENT
  Sex: Female

DRUGS (4)
  1. ZEMPLAR [Suspect]
     Indication: HYPERPARATHYROIDISM
     Dates: start: 20081212, end: 20090309
  2. CLONIDINE [Concomitant]
     Indication: DRUG USE FOR UNKNOWN INDICATION
  3. TOPROL-XL [Concomitant]
     Indication: DRUG USE FOR UNKNOWN INDICATION
  4. TOPROL-XL [Concomitant]

REACTIONS (8)
  - ABDOMINAL PAIN [None]
  - BONE PAIN [None]
  - DRY MOUTH [None]
  - DYSGEUSIA [None]
  - MYALGIA [None]
  - NAUSEA [None]
  - NOCTURNAL DYSPNOEA [None]
  - PALPITATIONS [None]
